FAERS Safety Report 4611651-3 (Version None)
Quarter: 2005Q1

REPORT INFORMATION
  Report Type: 
  Country: None (occurrence: None)
  Receive Date: 20050316
  Receipt Date: 20050316
  Transmission Date: 20050727
  Serious: Yes (Other)
  Sender: FDA-Public Use
  Company Number: None

PATIENT

DRUGS (1)
  1. ORTHO-NOVUM 1/35 [Suspect]
     Dosage: 1/35
     Dates: start: 20050124, end: 20050301

REACTIONS (3)
  - DRUG HYPERSENSITIVITY [None]
  - MENORRHAGIA [None]
  - PHARMACEUTICAL PRODUCT COMPLAINT [None]
